FAERS Safety Report 10181185 (Version 1)
Quarter: 2014Q2

REPORT INFORMATION
  Report Type: Spontaneous
  Country: US (occurrence: US)
  Receive Date: 20140519
  Receipt Date: 20140519
  Transmission Date: 20141212
  Serious: No
  Sender: FDA-Public Use
  Company Number: US-AMGEN INC.-USASP2014026447

PATIENT
  Age: 66 Year
  Sex: Female

DRUGS (5)
  1. PROLIA [Suspect]
     Indication: OSTEOPOROSIS POSTMENOPAUSAL
     Dosage: 60 MG, Q6MO
     Route: 065
     Dates: start: 201310
  2. CALCIUM [Concomitant]
  3. VITAMIN D                          /00107901/ [Concomitant]
  4. OMEGA 3                            /01333901/ [Concomitant]
  5. PRIMROSE OIL [Concomitant]

REACTIONS (5)
  - Blood cholesterol abnormal [Unknown]
  - Injection site movement impairment [Unknown]
  - Injection site pain [Unknown]
  - Tinnitus [Not Recovered/Not Resolved]
  - Pruritus [Recovered/Resolved]
